FAERS Safety Report 6315173-3 (Version None)
Quarter: 2009Q3

REPORT INFORMATION
  Report Type: 
  Country: None (occurrence: None)
  Receive Date: 20090817
  Receipt Date: 20090805
  Transmission Date: 20100115
  Serious: Yes (Other)
  Sender: FDA-Public Use
  Company Number: 2009AP003185

PATIENT
  Age: 56 Year
  Sex: Female

DRUGS (8)
  1. QUETIAPINE FUMARATE [Suspect]
     Indication: SCHIZOPHRENIA
     Dosage: 900 MG; HS; 750 MG; QD; 900 MG;HS
  2. DIAZEPAM [Suspect]
     Indication: AKATHISIA
     Dosage: 10 MG; HS;
  3. DIAZEPAM [Suspect]
     Indication: PARAESTHESIA
     Dosage: 10 MG; HS;
  4. CLONAZEPAM [Suspect]
     Indication: SOMNAMBULISM
     Dosage: 0.5 MG; HS
  5. SERTRALINE HYDROCHLORIDE [Suspect]
     Dosage: 150 MG; QD
  6. CLOZAPINE [Suspect]
  7. PHENYTOIN [Suspect]
     Dosage: 300 MG; QD
  8. ANTIPSYCHOTICS (ANTIPSYCHOTICS) [Concomitant]

REACTIONS (9)
  - AGRANULOCYTOSIS [None]
  - AKATHISIA [None]
  - DYSTONIA [None]
  - HYPOTENSION [None]
  - PAIN [None]
  - PARAESTHESIA [None]
  - SOMNAMBULISM [None]
  - SPEECH DISORDER [None]
  - TEMPOROMANDIBULAR JOINT SYNDROME [None]
